FAERS Safety Report 8918818 (Version 1)
Quarter: 2012Q4

REPORT INFORMATION
  Report Type: Spontaneous
  Country: US (occurrence: None)
  Receive Date: 20121115
  Receipt Date: 20121115
  Transmission Date: 20130627
  Serious: Yes (Other)
  Sender: FDA-Public Use
  Company Number: None

PATIENT
  Age: 59 Year
  Sex: Male
  Weight: 123.83 kg

DRUGS (1)
  1. ACTOS [Suspect]
     Dates: start: 20041102, end: 20121005

REACTIONS (1)
  - Bladder cancer [None]
